FAERS Safety Report 21547524 (Version 3)
Quarter: 2022Q4

REPORT INFORMATION
  Report Type: Spontaneous
  Country: FR (occurrence: FR)
  Receive Date: 20221103
  Receipt Date: 20221219
  Transmission Date: 20230113
  Serious: Yes (Death, Hospitalization, Other)
  Sender: FDA-Public Use
  Company Number: FR-EMA-DD-20221019-216281-100749

PATIENT
  Age: 14 Year
  Sex: Male

DRUGS (7)
  1. AZACITIDINE [Suspect]
     Active Substance: AZACITIDINE
     Indication: Acute biphenotypic leukaemia
     Dosage: 75 MILLIGRAM/SQ. METER, QD FOR 7 DAYS IN A CYCLE
  2. IDARUBICIN [Suspect]
     Active Substance: IDARUBICIN
     Indication: Acute biphenotypic leukaemia
     Dosage: UNK
  3. VENETOCLAX [Suspect]
     Active Substance: VENETOCLAX
     Indication: Acute biphenotypic leukaemia
     Dosage: ADMINISTERED IN 28 DAYS CYCLES, WITH AUGMENTED DOSING SINCE 5TH CYCLE
  4. VENETOCLAX [Suspect]
     Active Substance: VENETOCLAX
     Dosage: INITAIL ESCALATING DOSE OF 100?400 MG/DAY FOR FIRST 3 DAYS
  5. FLUDARABINE [Suspect]
     Active Substance: FLUDARABINE PHOSPHATE
     Indication: Acute biphenotypic leukaemia
     Dosage: UNK
  6. GEMTUZUMAB OZOGAMICIN [Suspect]
     Active Substance: GEMTUZUMAB OZOGAMICIN
     Indication: Acute biphenotypic leukaemia
  7. CYTARABINE [Suspect]
     Active Substance: CYTARABINE
     Indication: Acute biphenotypic leukaemia
     Dosage: UNK

REACTIONS (4)
  - Condition aggravated [Fatal]
  - Bronchopulmonary aspergillosis [Recovered/Resolved]
  - Febrile neutropenia [Recovered/Resolved]
  - Drug ineffective [Unknown]
